FAERS Safety Report 10232250 (Version 1)
Quarter: 2014Q2

REPORT INFORMATION
  Report Type: Spontaneous
  Country: US (occurrence: US)
  Receive Date: 20140612
  Receipt Date: 20140612
  Transmission Date: 20141212
  Serious: No
  Sender: FDA-Public Use
  Company Number: US-BIOGENIDEC-2014BI052641

PATIENT
  Age: 35 Year
  Sex: Female

DRUGS (3)
  1. TECFIDERA [Suspect]
     Indication: MULTIPLE SCLEROSIS
     Route: 048
     Dates: start: 20140403
  2. SENNA [Concomitant]
     Indication: LAXATIVE SUPPORTIVE CARE
  3. DITROPAN [Concomitant]

REACTIONS (3)
  - Arthralgia [Unknown]
  - Decreased appetite [Unknown]
  - Diarrhoea [Unknown]
